FAERS Safety Report 15163179 (Version 1)
Quarter: 2018Q3

REPORT INFORMATION
  Report Type: Report from Study
  Country: US (occurrence: US)
  Receive Date: 20180718
  Receipt Date: 20180718
  Transmission Date: 20181010
  Serious: No
  Sender: FDA-Public Use
  Company Number: US-AMGEN-USASP2014027597

PATIENT
  Age: 54 Year
  Sex: Male
  Weight: 104 kg

DRUGS (3)
  1. ENBREL [Suspect]
     Active Substance: ETANERCEPT
     Indication: PRODUCT USED FOR UNKNOWN INDICATION
     Dosage: 50 MG, 2 TIMES/WK
     Route: 058
     Dates: end: 201312
  2. LIPITOR [Concomitant]
     Active Substance: ATORVASTATIN CALCIUM
     Dosage: 10 MG, UNK
  3. ATENOLOL. [Concomitant]
     Active Substance: ATENOLOL
     Dosage: 25 MG, UNK

REACTIONS (2)
  - Psoriasis [Unknown]
  - Drug ineffective [Unknown]
